FAERS Safety Report 25004223 (Version 1)
Quarter: 2025Q1

REPORT INFORMATION
  Report Type: Spontaneous
  Country: US (occurrence: US)
  Receive Date: 20250224
  Receipt Date: 20250224
  Transmission Date: 20250409
  Serious: No
  Sender: LANTHEUS MEDICAL IMAGING
  Company Number: US-LANTHEUS-LMI-2024-00961

PATIENT
  Age: 55 Year
  Sex: Male

DRUGS (8)
  1. DEFINITY [Suspect]
     Active Substance: PERFLUTREN
     Indication: Echocardiogram
     Route: 042
     Dates: start: 20240730, end: 20240730
  2. ELIQUIS [Concomitant]
     Active Substance: APIXABAN
     Indication: Product used for unknown indication
  3. SOTALOL [Concomitant]
     Active Substance: SOTALOL
     Indication: Product used for unknown indication
  4. CRESTOR [Concomitant]
     Active Substance: ROSUVASTATIN CALCIUM
     Indication: Hypercholesterolaemia
  5. LISINOPRIL [Concomitant]
     Active Substance: LISINOPRIL
     Indication: Hypertension
  6. MAGNESIUM [Concomitant]
     Active Substance: MAGNESIUM
     Indication: Cardiac disorder
     Dosage: UNK, QD
  7. KRILL OIL [Concomitant]
     Active Substance: DIETARY SUPPLEMENT\KRILL OIL
     Indication: Product used for unknown indication
     Dosage: UNK, ONE PILL QD
  8. VITAMINS NOS [Concomitant]
     Active Substance: VITAMINS
     Indication: Product used for unknown indication

REACTIONS (6)
  - Dysstasia [Recovered/Resolved]
  - Gait disturbance [Recovered/Resolved]
  - Muscle spasms [Recovered/Resolved]
  - Nausea [Recovered/Resolved]
  - Hyperhidrosis [Recovered/Resolved]
  - Pain [Recovered/Resolved]

NARRATIVE: CASE EVENT DATE: 20240730
